FAERS Safety Report 8781523 (Version 3)
Quarter: 2014Q1

REPORT INFORMATION
  Report Type: Spontaneous
  Country: US (occurrence: US)
  Receive Date: 20120913
  Receipt Date: 20140310
  Transmission Date: 20141002
  Serious: Yes (Death)
  Sender: FDA-Public Use
  Company Number: GB-009507513-1101USA00198

PATIENT
  Age: 61 Year
  Sex: Female

DRUGS (9)
  1. SINGULAIR [Suspect]
     Route: 048
  2. SINGULAIR [Suspect]
     Route: 048
  3. LISINOPRIL [Suspect]
     Route: 048
  4. QUETIAPINE FUMARATE [Suspect]
     Route: 048
  5. SODIUM SALICYLATE [Suspect]
     Route: 048
  6. ACETAMINOPHEN [Suspect]
     Route: 048
  7. PROCHLORPERAZINE [Suspect]
     Route: 048
  8. ANDROGEN RECEPTOR ANTAGONIST (UNSPECIFIED) [Suspect]
     Route: 048
  9. SALICYLATE MEGLUMINE [Suspect]
     Route: 048

REACTIONS (3)
  - Completed suicide [Fatal]
  - Toxicity to various agents [Fatal]
  - Intentional drug misuse [Fatal]
